FAERS Safety Report 6430415-1 (Version None)
Quarter: 2009Q4

REPORT INFORMATION
  Report Type: 
  Country: None (occurrence: None)
  Receive Date: 20091104
  Receipt Date: 20091019
  Transmission Date: 20100525
  Serious: Yes (Other)
  Sender: FDA-Public Use
  Company Number: AVE_00971_2009

PATIENT
  Sex: Male
  Weight: 123.3784 kg

DRUGS (6)
  1. CLONIDINE [Suspect]
     Indication: PHAEOCHROMOCYTOMA
     Dosage: 0.6 MG QD VIA TWO 1/WEEKLY PATCH TRANSDERMAL
     Route: 062
     Dates: start: 20091003, end: 20091005
  2. LANTUS [Concomitant]
  3. NOVOLOG [Concomitant]
  4. VICODIN [Concomitant]
  5. CATAPRES PATCHES [Concomitant]
  6. INSPRA [Concomitant]

REACTIONS (6)
  - BLOOD PRESSURE INCREASED [None]
  - DERMATITIS CONTACT [None]
  - HYPOTENSION [None]
  - LETHARGY [None]
  - PRODUCT SUBSTITUTION ISSUE [None]
  - SCAB [None]
